FAERS Safety Report 15427673 (Version 1)
Quarter: 2018Q4

REPORT INFORMATION
  Report Type: Spontaneous
  Country: IE (occurrence: IE)
  Receive Date: 20180925
  Receipt Date: 20180925
  Transmission Date: 20190204
  Serious: Yes (Hospitalization)
  Sender: FDA-Public Use
  Company Number: IE-BAXTER-2018BAX023913

PATIENT
  Age: 4 Year
  Sex: Male

DRUGS (9)
  1. ONDANSETRON (GENERIC) [Concomitant]
     Indication: VOMITING
     Route: 048
     Dates: start: 20180731, end: 20180807
  2. ENDOXANA INJECTION 500 MG [Suspect]
     Active Substance: CYCLOPHOSPHAMIDE
     Dosage: 700MG X 2 DOSES, DOSAGE FORM: INJECTION
     Route: 042
     Dates: start: 20180801
  3. SODIUM CHLORIDE (G) [Concomitant]
     Indication: DEHYDRATION
     Route: 042
     Dates: start: 20180731, end: 20180801
  4. CYCLIZINE (GENERIC) [Concomitant]
     Indication: VOMITING
     Route: 048
     Dates: start: 20180731, end: 20180804
  5. VINCRISTINE (GENERIC) [Concomitant]
     Indication: MEDULLOBLASTOMA
     Route: 042
     Dates: start: 20180731
  6. ONDANSETRON (GENERIC) [Concomitant]
     Indication: NAUSEA
     Route: 042
     Dates: start: 20180731, end: 20180807
  7. ENDOXANA INJECTION 500 MG [Suspect]
     Active Substance: CYCLOPHOSPHAMIDE
     Indication: MEDULLOBLASTOMA
     Dosage: 1000MG/M2: 700MG X 2 DOSES, DOSAGE FORM: INJECTION
     Route: 042
     Dates: start: 20180731
  8. CYCLIZINE (GENERIC) [Concomitant]
     Indication: NAUSEA
     Route: 042
     Dates: start: 20180731, end: 20180804
  9. POTASSIUM CHLORIDE. [Concomitant]
     Active Substance: POTASSIUM CHLORIDE
     Indication: PRODUCT USED FOR UNKNOWN INDICATION
     Dosage: 20 MMOL/LITRE
     Route: 065

REACTIONS (3)
  - Haemorrhage urinary tract [Recovered/Resolved]
  - Dysuria [Recovered/Resolved]
  - Cystitis haemorrhagic [Recovered/Resolved]

NARRATIVE: CASE EVENT DATE: 20180801
